FAERS Safety Report 9729562 (Version 1)
Quarter: 2013Q4

REPORT INFORMATION
  Report Type: Spontaneous
  Country: US (occurrence: US)
  Receive Date: 20131204
  Receipt Date: 20131204
  Transmission Date: 20140711
  Serious: No
  Sender: FDA-Public Use
  Company Number: US-ENDO PHARMACEUTICALS INC.-OXAT20120002

PATIENT
  Sex: Female

DRUGS (2)
  1. OXYCODONE/ACETAMINOPHEN [Suspect]
     Indication: ANXIETY
     Dosage: 5 MG/325 MG
     Route: 048
  2. OXYCODONE/ACETAMINOPHEN [Suspect]
     Indication: HYPERHIDROSIS

REACTIONS (1)
  - Drug effect decreased [Unknown]
